FAERS Safety Report 20156014 (Version 1)
Quarter: 2021Q4

REPORT INFORMATION
  Report Type: Spontaneous
  Country: US (occurrence: None)
  Receive Date: 20211206
  Receipt Date: 20211206
  Transmission Date: 20220304
  Serious: No
  Sender: FDA-Public Use
  Company Number: None

PATIENT
  Age: 66 Year
  Sex: Female
  Weight: 51.75 kg

DRUGS (2)
  1. BACLOFEN [Suspect]
     Active Substance: BACLOFEN
     Indication: Muscle spasticity
     Dosage: OTHER QUANTITY : 60 TABLET(S);?FREQUENCY : EVERY 12 HOURS;?
     Route: 048
     Dates: start: 20211203, end: 20211205
  2. BACLOFEN [Suspect]
     Active Substance: BACLOFEN
     Indication: Spinal cord disorder

REACTIONS (3)
  - Insomnia [None]
  - Nausea [None]
  - Headache [None]

NARRATIVE: CASE EVENT DATE: 20211205
